FAERS Safety Report 18659083 (Version 1)
Quarter: 2020Q4

REPORT INFORMATION
  Report Type: Spontaneous
  Country: CA (occurrence: CA)
  Receive Date: 20201223
  Receipt Date: 20201223
  Transmission Date: 20210114
  Serious: Yes (Other)
  Sender: FDA-Public Use
  Company Number: CA-PURDUE-USA-2020-0192330

PATIENT
  Sex: Male

DRUGS (46)
  1. FENTANYL. [Suspect]
     Active Substance: FENTANYL
     Dosage: 1 DF AT 28 GESTATIONAL WEEK
     Route: 064
  2. FENTANYL. [Suspect]
     Active Substance: FENTANYL
     Dosage: 10 DF AT 7 GESTATIONAL WEEK
     Route: 064
  3. METHADONE [Suspect]
     Active Substance: METHADONE HYDROCHLORIDE
     Dosage: 80 MG AT 30 GESTATIONAL WEEK
     Route: 064
  4. METHADONE [Suspect]
     Active Substance: METHADONE HYDROCHLORIDE
     Dosage: 50 MG AT 28 GESTATIONAL WEEK
     Route: 064
  5. NON-PMN MORPHINE SULFATE [Suspect]
     Active Substance: MORPHINE SULFATE
     Dosage: 30 MG AT 29 GESTATIONAL WEEK
     Route: 064
  6. NON-PMN MORPHINE SULFATE [Suspect]
     Active Substance: MORPHINE SULFATE
     Dosage: 400 MG AT 21 GESTATIONAL WEEK
     Route: 064
  7. FENTANYL. [Suspect]
     Active Substance: FENTANYL
     Indication: PRODUCT USED FOR UNKNOWN INDICATION
     Dosage: 1 DF AT 31 GESTATIONAL WEEK
     Route: 064
  8. FENTANYL. [Suspect]
     Active Substance: FENTANYL
     Dosage: 1 DF AT 30 GESTATIONAL WEEK
     Route: 064
  9. NALOXON [Suspect]
     Active Substance: NALOXONE HYDROCHLORIDE
     Indication: PRODUCT USED FOR UNKNOWN INDICATION
     Dosage: UNK
     Route: 064
  10. METHADONE [Suspect]
     Active Substance: METHADONE HYDROCHLORIDE
     Indication: PRODUCT USED FOR UNKNOWN INDICATION
     Dosage: 145 MG BETWEEN 32-37 GESTATIONAL WEEK
     Route: 064
  11. METHADONE [Suspect]
     Active Substance: METHADONE HYDROCHLORIDE
     Dosage: 95 MG AT 31 GESTATIONAL WEEK
     Route: 064
  12. METHADONE [Suspect]
     Active Substance: METHADONE HYDROCHLORIDE
     Dosage: 65 MG AT 29 GESTATIONAL WEEK
     Route: 064
  13. METHADONE [Suspect]
     Active Substance: METHADONE HYDROCHLORIDE
     Dosage: 50 MG AT 26 GESTATIONAL WEEK
     Route: 064
  14. METHADONE [Suspect]
     Active Substance: METHADONE HYDROCHLORIDE
     Dosage: 155 MG AT 23 GESTATIONAL WEEK
     Route: 064
  15. METHADONE [Suspect]
     Active Substance: METHADONE HYDROCHLORIDE
     Dosage: 135 MG AT 19 GESTATIONAL WEEK
     Route: 064
  16. NON-PMN MORPHINE SULFATE [Suspect]
     Active Substance: MORPHINE SULFATE
     Dosage: 100 MG 31 GESTATIONAL WEEK
     Route: 064
  17. NON-PMN HYDROMORPHONE HCL [Suspect]
     Active Substance: HYDROMORPHONE HYDROCHLORIDE
     Dosage: BETWEEN 32-37 GESTATIONAL WEEKS 75 MG, BID
     Route: 064
  18. FENTANYL. [Suspect]
     Active Substance: FENTANYL
     Dosage: 1 DF AT 15 GESTATIONAL WEEK
     Route: 064
  19. CANNABIS [Suspect]
     Active Substance: CANNABIS SATIVA SUBSP. INDICA TOP
     Indication: PRODUCT USED FOR UNKNOWN INDICATION
     Dosage: UNK
     Route: 064
  20. NON-PMN MORPHINE SULFATE [Suspect]
     Active Substance: MORPHINE SULFATE
     Dosage: 100 MG AT 30 GESTATIONAL WEEK
     Route: 064
  21. NON-PMN MORPHINE SULFATE [Suspect]
     Active Substance: MORPHINE SULFATE
     Dosage: 30 MG, AT 24 GESTATIONAL WEEK
     Route: 064
  22. NON-PMN MORPHINE SULFATE [Suspect]
     Active Substance: MORPHINE SULFATE
     Indication: PRODUCT USED FOR UNKNOWN INDICATION
     Dosage: 600 MG BETWEEN 32-37 GESTATIONAL WEEKS
     Route: 064
  23. NON-PMN MORPHINE SULFATE [Suspect]
     Active Substance: MORPHINE SULFATE
     Dosage: 30 MG AT 28 GESTATIONAL WEEK
     Route: 064
  24. NON-PMN MORPHINE SULFATE [Suspect]
     Active Substance: MORPHINE SULFATE
     Dosage: 30 MG AT 26 GESTATIONAL WEEK
     Route: 064
  25. NON-PMN MORPHINE SULFATE [Suspect]
     Active Substance: MORPHINE SULFATE
     Dosage: 400 MG AT 9 GESTATIONAL WEEK
     Route: 064
  26. NON-PMN HYDROMORPHONE HCL [Suspect]
     Active Substance: HYDROMORPHONE HYDROCHLORIDE
     Dosage: 90 MG, BID
     Route: 064
  27. FENTANYL. [Suspect]
     Active Substance: FENTANYL
     Dosage: 1 DF AT 29 GESTATIONAL WEEK
     Route: 064
  28. FENTANYL. [Suspect]
     Active Substance: FENTANYL
     Dosage: 10 DF AT 24 GESTATIONAL WEEK
     Route: 064
  29. FENTANYL. [Suspect]
     Active Substance: FENTANYL
     Dosage: 1 DF AT 21 GESTATIONAL WEEK
     Route: 064
  30. FENTANYL. [Suspect]
     Active Substance: FENTANYL
     Dosage: 1 DF AT 11 GESTATIONAL WEEK
     Route: 064
  31. NON-PMN MORPHINE SULFATE [Suspect]
     Active Substance: MORPHINE SULFATE
     Dosage: 360 MG AT 15 GESTATIONAL WEEK
     Route: 064
  32. FENTANYL. [Suspect]
     Active Substance: FENTANYL
     Dosage: 2-3 DF AT 19 GESTATIONAL WEEK
     Route: 064
  33. FENTANYL. [Suspect]
     Active Substance: FENTANYL
     Dosage: 1 DF AT 9 GESTATIONAL WEEK
     Route: 064
  34. LEVAMISOLE [Suspect]
     Active Substance: LEVAMISOLE
     Indication: PRODUCT USED FOR UNKNOWN INDICATION
     Dosage: UNK
     Route: 064
  35. METHADONE [Suspect]
     Active Substance: METHADONE HYDROCHLORIDE
     Dosage: 110 MG AT 11 GESTATIONAL WEEK
     Route: 064
  36. METHADONE [Suspect]
     Active Substance: METHADONE HYDROCHLORIDE
     Dosage: 90 MG AT 9 GESTATIONAL WEEK
     Route: 064
  37. METHADONE [Suspect]
     Active Substance: METHADONE HYDROCHLORIDE
     Dosage: 60 MG AT 7 GESTATIONAL WEEK
     Route: 064
  38. NON-PMN MORPHINE SULFATE [Suspect]
     Active Substance: MORPHINE SULFATE
     Dosage: 400 MG AT 23 GESTATIONAL WEEK
     Route: 064
  39. NON-PMN MORPHINE SULFATE [Suspect]
     Active Substance: MORPHINE SULFATE
     Dosage: 300 MG, AT 19 GESTATIONAL WEEK
     Route: 064
  40. NON-PMN MORPHINE SULFATE [Suspect]
     Active Substance: MORPHINE SULFATE
     Dosage: 360 MG AT 11 GESTATIONAL WEEK
     Route: 064
  41. NON-PMN HYDROMORPHONE HCL [Suspect]
     Active Substance: HYDROMORPHONE HYDROCHLORIDE
     Indication: PRODUCT USED FOR UNKNOWN INDICATION
     Dosage: 10 MG, BID
     Route: 064
  42. METHADONE [Suspect]
     Active Substance: METHADONE HYDROCHLORIDE
     Dosage: 145 MG AT 21 GESTATIONAL WEEK
     Route: 064
  43. METHADONE [Suspect]
     Active Substance: METHADONE HYDROCHLORIDE
     Dosage: 125 MG AT 15 GESTATIONAL WEEK
     Route: 064
  44. FENTANYL. [Suspect]
     Active Substance: FENTANYL
     Dosage: 1 DF AT 23 GESTATIONAL WEEK
     Route: 064
  45. COCAINE [Suspect]
     Active Substance: COCAINE
     Indication: PRODUCT USED FOR UNKNOWN INDICATION
     Dosage: UNK
     Route: 064
  46. METHADONE [Suspect]
     Active Substance: METHADONE HYDROCHLORIDE
     Dosage: 30 MG AT 24 GESTATIONAL WEEK
     Route: 064

REACTIONS (3)
  - Complication of delivery [Unknown]
  - Foetal exposure during pregnancy [Unknown]
  - Drug withdrawal syndrome neonatal [Unknown]
